FAERS Safety Report 5369333-9 (Version None)
Quarter: 2007Q2

REPORT INFORMATION
  Report Type: 
  Country: None (occurrence: None)
  Receive Date: 20070625
  Receipt Date: 20070329
  Transmission Date: 20071010
  Serious: Yes (Hospitalization)
  Sender: FDA-Public Use
  Company Number: US-ASTRAZENECA-2007UW06432

PATIENT

DRUGS (3)
  1. CRESTOR [Suspect]
     Route: 048
  2. NEXIUM [Concomitant]
     Route: 048
  3. ALBUTEROL [Concomitant]

REACTIONS (2)
  - BRONCHITIS [None]
  - HEPATIC ENZYME INCREASED [None]
